FAERS Safety Report 8274456-0 (Version None)
Quarter: 2012Q2

REPORT INFORMATION
  Report Type: 
  Country: None (occurrence: None)
  Receive Date: 20120409
  Receipt Date: 20120326
  Transmission Date: 20120825
  Serious: Yes (Hospitalization)
  Sender: FDA-Public Use
  Company Number: 2012MA004310

PATIENT
  Sex: Female

DRUGS (2)
  1. SEROQUEL [Concomitant]
  2. SERTRALINE HYDROCHLORIDE [Suspect]
     Dosage: 20 MG;QD;TRPL
     Route: 064

REACTIONS (4)
  - NEONATAL ASPHYXIA [None]
  - PERSISTENT FOETAL CIRCULATION [None]
  - MATERNAL DRUGS AFFECTING FOETUS [None]
  - NEONATAL RESPIRATORY DISTRESS SYNDROME [None]
